FAERS Safety Report 9129184 (Version 2)
Quarter: 2013Q3

REPORT INFORMATION
  Report Type: Report from Study
  Country: FR (occurrence: FR)
  Receive Date: 20130125
  Receipt Date: 20130828
  Transmission Date: 20140515
  Serious: Yes (Other)
  Sender: FDA-Public Use
  Company Number: FR-ROCHE-1183145

PATIENT
  Age: 56 Year
  Sex: Male
  Weight: 101 kg

DRUGS (9)
  1. RITUXIMAB [Suspect]
     Indication: MANTLE CELL LYMPHOMA REFRACTORY
     Route: 065
  2. TEMSIROLIMUS [Suspect]
     Indication: MANTLE CELL LYMPHOMA REFRACTORY
     Dosage: MOST RECENT DOSE ON 19/OCT/2012
     Route: 065
     Dates: start: 20120907
  3. DOXORUBICIN HCL [Suspect]
     Indication: MANTLE CELL LYMPHOMA REFRACTORY
     Route: 065
  4. CYCLOPHOSPHAMIDE [Suspect]
     Indication: MANTLE CELL LYMPHOMA REFRACTORY
     Route: 065
  5. PREDNISOLONE [Suspect]
     Indication: MANTLE CELL LYMPHOMA REFRACTORY
     Route: 065
  6. VINCRISTINE [Suspect]
     Indication: MANTLE CELL LYMPHOMA REFRACTORY
     Route: 065
  7. LISINOPRIL [Concomitant]
     Indication: HYPERTENSION
  8. CRESTOR [Concomitant]
     Indication: HYPERCHOLESTEROLAEMIA
     Route: 065
     Dates: start: 201209
  9. AZITHROMYCIN [Concomitant]
     Indication: URINARY TRACT INFECTION
     Route: 065
     Dates: start: 20121015

REACTIONS (1)
  - Jugular vein thrombosis [Recovered/Resolved]
